FAERS Safety Report 9191057 (Version 5)
Quarter: 2014Q2

REPORT INFORMATION
  Report Type: Spontaneous
  Country: US (occurrence: US)
  Receive Date: 20130326
  Receipt Date: 20140508
  Transmission Date: 20141212
  Serious: No
  Sender: FDA-Public Use
  Company Number: US-009507513-1303USA012091

PATIENT
  Sex: Male

DRUGS (6)
  1. PROPECIA [Suspect]
     Indication: ANDROGENETIC ALOPECIA
     Dosage: 1 MG, QD
     Route: 048
     Dates: start: 20040621
  2. FINASTERIDE [Suspect]
     Indication: ANDROGENETIC ALOPECIA
     Dosage: 1 MG, UNK
     Dates: start: 20040621
  3. LEXAPRO [Concomitant]
     Indication: DEPRESSION
     Dosage: UNK
     Dates: start: 20021125
  4. CELEXA [Concomitant]
     Indication: STRESS
     Dosage: 20 MG, UNK
     Dates: start: 20021125
  5. NORVASC [Concomitant]
     Indication: HYPERTENSION
     Dosage: 10 MG, UNK
     Dates: start: 20021125
  6. PRILOSEC [Concomitant]
     Indication: DYSPEPSIA
     Dosage: 40 MG, UNK
     Dates: start: 20021125

REACTIONS (26)
  - Cognitive disorder [Not Recovered/Not Resolved]
  - Testicular disorder [Unknown]
  - Testicular disorder [Unknown]
  - Hair transplant [Unknown]
  - Anxiety [Unknown]
  - Anxiety [Unknown]
  - Mood altered [Unknown]
  - Mood altered [Unknown]
  - Insomnia [Unknown]
  - Muscle tightness [Unknown]
  - Haematuria [Unknown]
  - Nephrolithiasis [Unknown]
  - Diabetes mellitus [Unknown]
  - Stress at work [Unknown]
  - Adverse event [Unknown]
  - Blood cholesterol abnormal [Unknown]
  - Benign prostatic hyperplasia [Unknown]
  - Infertility male [Not Recovered/Not Resolved]
  - Sexual dysfunction [Unknown]
  - Sexual dysfunction [Unknown]
  - Erectile dysfunction [Unknown]
  - Erectile dysfunction [Unknown]
  - Erectile dysfunction [Unknown]
  - Depression [Unknown]
  - Depression [Unknown]
  - Drug ineffective [Unknown]
